FAERS Safety Report 7064417-1 (Version None)
Quarter: 2010Q4

REPORT INFORMATION
  Report Type: 
  Country: None (occurrence: None)
  Receive Date: 20101027
  Receipt Date: 20101014
  Transmission Date: 20110411
  Serious: Yes (Hospitalization, Other)
  Sender: FDA-Public Use
  Company Number: PHHY2009TW60904

PATIENT

DRUGS (1)
  1. GLEEVEC [Suspect]
     Indication: GASTROINTESTINAL STROMAL TUMOUR
     Dosage: LESS THAN 400

REACTIONS (5)
  - NEOPLASM MALIGNANT [None]
  - OEDEMA PERIPHERAL [None]
  - SKIN EXFOLIATION [None]
  - THYROID NEOPLASM [None]
  - THYROID OPERATION [None]
